FAERS Safety Report 4578593-3 (Version None)
Quarter: 2005Q1

REPORT INFORMATION
  Report Type: 
  Country: None (occurrence: None)
  Receive Date: 20050207
  Receipt Date: 20050207
  Transmission Date: 20050727
  Serious: No
  Sender: FDA-Public Use
  Company Number: None

PATIENT
  Age: 70 Year
  Sex: Male
  Weight: 92.0802 kg

DRUGS (9)
  1. UROXATRAL [Suspect]
     Indication: BENIGN PROSTATIC HYPERPLASIA
     Dates: start: 20040907, end: 20040909
  2. TOPROL-XL [Concomitant]
  3. ALTACE [Concomitant]
  4. COUMADIN [Concomitant]
  5. AMIODARONE HCL [Concomitant]
  6. CRESTOR [Concomitant]
  7. ASPIRIN [Concomitant]
  8. SYNTHROID [Concomitant]
  9. AVANDIA [Concomitant]

REACTIONS (2)
  - BLOOD PRESSURE SYSTOLIC DECREASED [None]
  - DIZZINESS [None]
